FAERS Safety Report 4434358-4 (Version None)
Quarter: 2004Q3

REPORT INFORMATION
  Report Type: 
  Country: None (occurrence: None)
  Receive Date: 20040825
  Receipt Date: 20040811
  Transmission Date: 20050211
  Serious: Yes (Hospitalization, Other)
  Sender: FDA-Public Use
  Company Number: USA030948679

PATIENT
  Age: 82 Year
  Sex: Female
  Weight: 58 kg

DRUGS (18)
  1. FORTEO [Suspect]
     Indication: OSTEOPOROSIS
     Dosage: 20 UG IN THE EVENING
     Dates: start: 20030301, end: 20040624
  2. PREVACID [Concomitant]
  3. FUROSEMIDE [Concomitant]
  4. SPIRONOLACTONE [Concomitant]
  5. LODRONAT (CLODRONATE DISODIUM) [Concomitant]
  6. ZOLOFT [Concomitant]
  7. PLAVIX [Concomitant]
  8. KLOR-CON [Concomitant]
  9. DEXTRAL [Concomitant]
  10. CELEBREX [Concomitant]
  11. NITROGLYCERIN [Concomitant]
  12. LOTREL [Concomitant]
  13. TOPROL-XL [Concomitant]
  14. VICODIN [Concomitant]
  15. VITAMIN E [Concomitant]
  16. VITAMIN C [Concomitant]
  17. POTASSIUM [Concomitant]
  18. CALCIUM [Concomitant]

REACTIONS (12)
  - ANOREXIA [None]
  - BACK DISORDER [None]
  - BLOOD ALKALINE PHOSPHATASE INCREASED [None]
  - CHEST WALL PAIN [None]
  - MEDICAL DEVICE COMPLICATION [None]
  - MUSCLE CRAMP [None]
  - OVARIAN CANCER [None]
  - PHARMACEUTICAL PRODUCT COMPLAINT [None]
  - POST PROCEDURAL COMPLICATION [None]
  - RECURRENT CANCER [None]
  - SMALL INTESTINAL OBSTRUCTION [None]
  - STOMACH DISCOMFORT [None]
